FAERS Safety Report 7967729-X (Version None)
Quarter: 2011Q4

REPORT INFORMATION
  Report Type: 
  Country: None (occurrence: None)
  Receive Date: 20111209
  Receipt Date: 20111209
  Transmission Date: 20120403
  Serious: Yes (Life-Threatening, Other)
  Sender: FDA-Public Use
  Company Number: None

PATIENT
  Age: 79 Year
  Sex: Male
  Weight: 84.368 kg

DRUGS (1)
  1. LATANOPROST [Suspect]
     Indication: GLAUCOMA
     Dosage: 2.5ML
     Route: 031
     Dates: start: 20111108, end: 20111208

REACTIONS (3)
  - VISION BLURRED [None]
  - DYSPNOEA [None]
  - EYE PRURITUS [None]
